FAERS Safety Report 4397573-4 (Version None)
Quarter: 2004Q3

REPORT INFORMATION
  Report Type: 
  Country: None (occurrence: None)
  Receive Date: 20040708
  Receipt Date: 20040621
  Transmission Date: 20050211
  Serious: No
  Sender: FDA-Public Use
  Company Number: 601333

PATIENT
  Age: 55 Year
  Sex: Female
  Weight: 90 kg

DRUGS (3)
  1. GAMMAGARD S/D [Suspect]
     Indication: VASCULITIS
     Dosage: 35 GM; QD; INTRAVENOUS
     Route: 042
     Dates: start: 20040511, end: 20040513
  2. GAMMAGARD S/D [Suspect]
  3. GAMMAGARD S/D [Suspect]

REACTIONS (2)
  - DEEP VEIN THROMBOSIS [None]
  - THROMBOPHLEBITIS SUPERFICIAL [None]
